FAERS Safety Report 25186113 (Version 3)
Quarter: 2025Q2

REPORT INFORMATION
  Report Type: Spontaneous
  Country: DE (occurrence: DE)
  Receive Date: 20250410
  Receipt Date: 20250424
  Transmission Date: 20250716
  Serious: Yes (Hospitalization, Other)
  Sender: BIOMARIN
  Company Number: DE-BIOMARINAP-DE-2025-163219

PATIENT

DRUGS (1)
  1. NAGLAZYME [Suspect]
     Active Substance: GALSULFASE
     Indication: Mucopolysaccharidosis VI
     Dosage: 25 MILLIGRAM, QW
     Route: 042

REACTIONS (4)
  - Intraocular pressure increased [Not Recovered/Not Resolved]
  - Retinal tear [Unknown]
  - Headache [Recovering/Resolving]
  - Lacrimation increased [Recovering/Resolving]
